FAERS Safety Report 8742177 (Version 2)
Quarter: 2012Q4

REPORT INFORMATION
  Report Type: 
  Country: CA (occurrence: CA)
  Receive Date: 20120824
  Receipt Date: 20120903
  Transmission Date: 20130627
  Serious: Yes (Hospitalization, Other)
  Sender: FDA-Public Use
  Company Number: PHHY2012CA072882

PATIENT
  Sex: Female

DRUGS (7)
  1. CLOZARIL [Suspect]
     Indication: SCHIZOPHRENIA
     Dates: start: 20110316
  2. CLOZARIL [Suspect]
     Dosage: 150 mg, UNK
     Route: 048
  3. EPIVAL [Concomitant]
  4. HYDROCHLOROTHIAZIDE [Concomitant]
  5. CIPRALEX [Concomitant]
  6. DESMOPRESSIN ACETATE [Concomitant]
  7. LACTULOSE [Concomitant]

REACTIONS (2)
  - Breast cancer [Unknown]
  - Drug hypersensitivity [Unknown]
